FAERS Safety Report 11167574 (Version 2)
Quarter: 2015Q2

REPORT INFORMATION
  Report Type: Report from Study
  Country: US (occurrence: US)
  Receive Date: 20150605
  Receipt Date: 20150617
  Transmission Date: 20150821
  Serious: Yes (Other)
  Sender: FDA-Public Use
  Company Number: US-SA-2015SA070662

PATIENT
  Age: 44 Year
  Sex: Female

DRUGS (2)
  1. SOLU-MEDROL [Concomitant]
     Active Substance: METHYLPREDNISOLONE SODIUM SUCCINATE
  2. LEMTRADA [Suspect]
     Active Substance: ALEMTUZUMAB
     Indication: MULTIPLE SCLEROSIS
     Route: 041
     Dates: start: 20150518, end: 20150522

REACTIONS (24)
  - Night sweats [Recovered/Resolved]
  - Flushing [Unknown]
  - Pain [Unknown]
  - Abdominal discomfort [Unknown]
  - Anxiety [Unknown]
  - Decreased appetite [Unknown]
  - Candida infection [Unknown]
  - Pyrexia [Unknown]
  - Dyspepsia [Unknown]
  - Fatigue [Recovering/Resolving]
  - Limb discomfort [Unknown]
  - Weight increased [Unknown]
  - Erythema [Unknown]
  - Urinary tract infection [Unknown]
  - Asthenia [Unknown]
  - Chest pain [Unknown]
  - Feeling abnormal [Unknown]
  - Headache [Unknown]
  - Fatigue [Unknown]
  - Device dislocation [Unknown]
  - Constipation [Unknown]
  - Abdominal distension [Unknown]
  - Insomnia [Unknown]
  - Chest discomfort [Unknown]

NARRATIVE: CASE EVENT DATE: 201505
